FAERS Safety Report 5086873-0 (Version None)
Quarter: 2006Q3

REPORT INFORMATION
  Report Type: 
  Country: None (occurrence: None)
  Receive Date: 20060818
  Receipt Date: 20060811
  Transmission Date: 20061208
  Serious: Yes (Death)
  Sender: FDA-Public Use
  Company Number: 2006P1000410

PATIENT
  Age: 84 Year
  Sex: Male

DRUGS (1)
  1. RETEVASE [Suspect]
     Indication: ARTERIAL OCCLUSIVE DISEASE
     Dosage: 0.5 U; QH; IART
     Route: 013

REACTIONS (1)
  - MYOCARDIAL INFARCTION [None]
